FAERS Safety Report 8542065-1 (Version None)
Quarter: 2012Q3

REPORT INFORMATION
  Report Type: 
  Country: None (occurrence: None)
  Receive Date: 20120726
  Receipt Date: 20120713
  Transmission Date: 20120928
  Serious: No
  Sender: FDA-Public Use
  Company Number: US-ASTRAZENECA-2012SE49526

PATIENT
  Age: 39 Year
  Sex: Female
  Weight: 87.1 kg

DRUGS (6)
  1. CLONAZEPAM [Concomitant]
     Indication: BIPOLAR DISORDER
  2. SEROQUEL [Suspect]
     Route: 048
  3. REMERON [Concomitant]
     Indication: BIPOLAR DISORDER
  4. SEROQUEL [Suspect]
     Indication: SLEEP DISORDER
     Route: 048
  5. SEROQUEL [Suspect]
     Route: 048
  6. LITHIUM CARBONATE [Concomitant]
     Indication: BIPOLAR DISORDER

REACTIONS (5)
  - SOMNOLENCE [None]
  - DRUG DOSE OMISSION [None]
  - INSOMNIA [None]
  - PARANOIA [None]
  - INTENTIONAL DRUG MISUSE [None]
